FAERS Safety Report 11124052 (Version 2)
Quarter: 2015Q2

REPORT INFORMATION
  Report Type: Spontaneous
  Country: US (occurrence: US)
  Receive Date: 20150520
  Receipt Date: 20150622
  Transmission Date: 20150821
  Serious: No
  Sender: FDA-Public Use
  Company Number: US-ASTRAZENECA-2015SE44010

PATIENT
  Age: 60 Year
  Sex: Female

DRUGS (2)
  1. PROAIR INHALER [Concomitant]
     Route: 055
  2. SYMBICORT [Suspect]
     Active Substance: BUDESONIDE\FORMOTEROL FUMARATE DIHYDRATE
     Dosage: 80/4.5 MCG,TWO PUFFS,120 INHALATIONS,TWO TIMES A DAY
     Route: 055
     Dates: start: 20150506

REACTIONS (2)
  - Cough [Unknown]
  - Underdose [Unknown]

NARRATIVE: CASE EVENT DATE: 20150507
